FAERS Safety Report 12929639 (Version 2)
Quarter: 2019Q1

REPORT INFORMATION
  Report Type: Spontaneous
  Country: US (occurrence: US)
  Receive Date: 20161110
  Receipt Date: 20190315
  Transmission Date: 20190417
  Serious: Yes (Death, Hospitalization, Other)
  Sender: FDA-Public Use
  Company Number: US-SA-2016SA201690

PATIENT
  Age: 59 Year
  Sex: Female

DRUGS (2)
  1. LUMIZYME [Suspect]
     Active Substance: ALGLUCOSIDASE ALFA
     Dosage: UNK
     Route: 041
     Dates: start: 20100611, end: 20190308
  2. LUMIZYME [Suspect]
     Active Substance: ALGLUCOSIDASE ALFA
     Indication: GLYCOGEN STORAGE DISEASE TYPE II
     Dosage: 1700 MG,QOW
     Route: 041
     Dates: start: 20070327, end: 20160922

REACTIONS (3)
  - Rash [Unknown]
  - Death [Fatal]
  - Hospitalisation [Unknown]
